FAERS Safety Report 25475308 (Version 1)
Quarter: 2025Q2

REPORT INFORMATION
  Report Type: Spontaneous
  Country: DE (occurrence: DE)
  Receive Date: 20250624
  Receipt Date: 20250624
  Transmission Date: 20250717
  Serious: Yes (Hospitalization)
  Sender: PRASCO
  Company Number: DE-TEVA-2021-DE-1970893

PATIENT
  Age: 73 Year
  Sex: Female

DRUGS (13)
  1. NITROLINGUAL [Suspect]
     Active Substance: NITROGLYCERIN
     Indication: Product used for unknown indication
     Route: 060
  2. LERCANIDIPINE [Suspect]
     Active Substance: LERCANIDIPINE
     Indication: Product used for unknown indication
     Dosage: 1 DOSAGE FORMS DAILY; 1 DOSAGE FORM IS 1 TABLET
     Route: 048
  3. LERCANIDIPINE [Suspect]
     Active Substance: LERCANIDIPINE
     Dosage: .5 DOSAGE FORMS DAILY; 1 DOSAGE FORM IS 1 TABLET
     Route: 048
  4. LISINOPRIL [Interacting]
     Active Substance: LISINOPRIL
     Indication: Hypertension
     Dosage: 40 MILLIGRAM DAILY; 2 TABLETS IN THE MORNING AND 2 TABLETS IN THE EVENING
     Route: 048
     Dates: start: 202110
  5. LISINOPRIL [Interacting]
     Active Substance: LISINOPRIL
     Dosage: 30 MILLIGRAM DAILY; 1 TABLETS IN THE MORNING AND 2 TABLETS IN THE EVENING
     Route: 048
     Dates: end: 202110
  6. ASPIRIN [Interacting]
     Active Substance: ASPIRIN
     Indication: Product used for unknown indication
     Dosage: 100 MILLIGRAM DAILY; 1 TABLET IN THE MORNING
     Route: 048
  7. PANTOPRAZOLE SODIUM [Interacting]
     Active Substance: PANTOPRAZOLE SODIUM
     Indication: Gastrooesophageal reflux disease
     Route: 048
  8. TORSEMIDE [Interacting]
     Active Substance: TORSEMIDE
     Indication: Hypertension
     Dosage: 5 MILLIGRAM DAILY; 1 TABLET IN THE MORNING
     Route: 048
  9. NEBIVOLOL [Interacting]
     Active Substance: NEBIVOLOL
     Indication: Palpitations
     Dosage: 2.5 MILLIGRAM DAILY; HALF TABLET IN THE EVENING
     Route: 048
  10. NEBIVOLOL [Interacting]
     Active Substance: NEBIVOLOL
     Dosage: 5 MILLIGRAM DAILY; DISCONTINED DUE TO
     Route: 048
  11. SIMVASTATIN [Interacting]
     Active Substance: SIMVASTATIN
     Indication: Product used for unknown indication
     Dosage: 20 MILLIGRAM DAILY; 1 TABLET IN THE EVENING
     Route: 048
  12. POTASSIUM IODIDE [Interacting]
     Active Substance: POTASSIUM IODIDE
     Indication: Product used for unknown indication
     Dosage: 200 MILLIGRAM DAILY; 1 TABLET IN THE MORNING
     Route: 048
  13. LERCANIDIPINE HYDROCHLORIDE [Concomitant]
     Active Substance: LERCANIDIPINE HYDROCHLORIDE
     Indication: Product used for unknown indication
     Dosage: 1 DOSAGE FORMS DAILY; 1 DOSAGE FORM IS ONE TABLET
     Route: 048

REACTIONS (8)
  - Drug ineffective [Unknown]
  - Blood pressure fluctuation [Unknown]
  - Fatigue [Unknown]
  - Insomnia [Unknown]
  - Drug interaction [Unknown]
  - Fear [Unknown]
  - Feeling cold [Unknown]
  - Middle insomnia [Unknown]
